FAERS Safety Report 9683355 (Version 2)
Quarter: 2013Q4

REPORT INFORMATION
  Report Type: Spontaneous
  Country: US (occurrence: US)
  Receive Date: 20131112
  Receipt Date: 20131121
  Transmission Date: 20140711
  Serious: Yes (Life-Threatening, Hospitalization, Disabling, Other)
  Sender: FDA-Public Use
  Company Number: US-BAYER-2013-134497

PATIENT
  Age: 59 Year
  Sex: Male

DRUGS (6)
  1. CIPRO [Suspect]
     Indication: COLON INJURY
     Dosage: 500 MG, UNK
     Route: 042
     Dates: start: 20110812
  2. CIPRO [Suspect]
     Indication: COLON INJURY
     Dosage: 250 MG, UNK
     Route: 048
  3. ZANAFLEX [Suspect]
     Indication: MUSCLE SPASMS
     Dosage: 12 MG, UNK
     Route: 065
  4. LUNESTA [Concomitant]
  5. OXYCONTIN [Concomitant]
  6. PREVACID [Concomitant]

REACTIONS (18)
  - Cardiac arrest [Recovered/Resolved]
  - Myocardial infarction [Recovered/Resolved]
  - Renal failure acute [Recovered/Resolved]
  - Blood pressure systolic decreased [Recovered/Resolved]
  - Anoxia [Recovered/Resolved with Sequelae]
  - Renal failure chronic [Not Recovered/Not Resolved]
  - Brain injury [Not Recovered/Not Resolved]
  - Amnesia [None]
  - Memory impairment [None]
  - Disturbance in attention [None]
  - Asthenia [Not Recovered/Not Resolved]
  - Gait disturbance [Not Recovered/Not Resolved]
  - Balance disorder [Not Recovered/Not Resolved]
  - Impaired driving ability [Not Recovered/Not Resolved]
  - Renal impairment [None]
  - Blood urea increased [None]
  - Blood creatinine increased [None]
  - Labelled drug-drug interaction medication error [None]
